FAERS Safety Report 12429239 (Version 2)
Quarter: 2016Q2

REPORT INFORMATION
  Report Type: Spontaneous
  Country: FR (occurrence: FR)
  Receive Date: 20160602
  Receipt Date: 20160614
  Transmission Date: 20160815
  Serious: Yes (Hospitalization)
  Sender: FDA-Public Use
  Company Number: FR-ASTRAZENECA-2016SE57475

PATIENT
  Age: 1117 Month
  Sex: Female

DRUGS (7)
  1. IVERMECTINE [Concomitant]
     Indication: ACARODERMATITIS
  2. DIFFU K [Suspect]
     Active Substance: POTASSIUM CHLORIDE
     Route: 048
  3. INEXIUM [Suspect]
     Active Substance: ESOMEPRAZOLE
     Route: 048
  4. BISOCE [Suspect]
     Active Substance: BISOPROLOL
     Route: 048
  5. GALVUS [Suspect]
     Active Substance: VILDAGLIPTIN
     Indication: TYPE 2 DIABETES MELLITUS
     Dosage: 50 MG TWICE A DAY
     Route: 048
  6. LASILIX FAIBLE [Suspect]
     Active Substance: FUROSEMIDE
     Route: 048
  7. KARDEGIC [Suspect]
     Active Substance: ASPIRIN LYSINE
     Route: 048

REACTIONS (2)
  - Pruritus [Not Recovered/Not Resolved]
  - Pemphigoid [Not Recovered/Not Resolved]

NARRATIVE: CASE EVENT DATE: 201509
